FAERS Safety Report 9597017 (Version 3)
Quarter: 2014Q1

REPORT INFORMATION
  Report Type: Spontaneous
  Country: IT (occurrence: IT)
  Receive Date: 20131004
  Receipt Date: 20140313
  Transmission Date: 20141002
  Serious: Yes (Life-Threatening)
  Sender: FDA-Public Use
  Company Number: IT-009507513-1310ITA001092

PATIENT
  Age: 18 Year
  Sex: Female

DRUGS (2)
  1. ASMANEX TWISTHALER [Suspect]
     Dosage: UNK
     Route: 055
     Dates: start: 20130805, end: 20130810
  2. ELOPRAM [Concomitant]
     Dosage: UNK
     Route: 048

REACTIONS (3)
  - Asthmatic crisis [Recovering/Resolving]
  - Condition aggravated [Recovering/Resolving]
  - Asthmatic crisis [Unknown]
